FAERS Safety Report 6890086-7 (Version None)
Quarter: 2010Q3

REPORT INFORMATION
  Report Type: 
  Country: None (occurrence: None)
  Receive Date: 20100730
  Receipt Date: 20080725
  Transmission Date: 20110219
  Serious: No
  Sender: FDA-Public Use
  Company Number: US-PFIZER INC-2008063087

PATIENT
  Sex: Male
  Weight: 90 kg

DRUGS (16)
  1. LIPITOR [Suspect]
     Indication: HIGH DENSITY LIPOPROTEIN DECREASED
     Dates: start: 20080701
  2. PLAVIX [Concomitant]
  3. METOPROLOL TARTRATE [Concomitant]
  4. LOVASTATIN [Concomitant]
  5. PAROXETINE HCL [Concomitant]
  6. METFORMIN HCL [Concomitant]
  7. GLIPIZIDE [Concomitant]
  8. LISINOPRIL [Concomitant]
  9. NORTRIPTYLINE [Concomitant]
  10. ACETYLSALICYLIC ACID SRT [Concomitant]
  11. VITAMIN E [Concomitant]
  12. FISH OIL [Concomitant]
  13. MULTI-VITAMINS [Concomitant]
  14. NITROGLYCERIN [Concomitant]
  15. MINITRAN [Concomitant]
  16. RANEXA [Concomitant]

REACTIONS (1)
  - INSOMNIA [None]
